FAERS Safety Report 13882527 (Version 1)
Quarter: 2017Q3

REPORT INFORMATION
  Report Type: Spontaneous
  Country: CN (occurrence: CN)
  Receive Date: 20170818
  Receipt Date: 20170818
  Transmission Date: 20171127
  Serious: Yes (Hospitalization)
  Sender: FDA-Public Use
  Company Number: CN-BAYER-2017-156369

PATIENT
  Age: 60 Year
  Sex: Female
  Weight: 55 kg

DRUGS (4)
  1. IOPROMIDE [Suspect]
     Active Substance: IOPROMIDE
     Indication: ARTERIOGRAM CORONARY
  2. IOPROMIDE [Suspect]
     Active Substance: IOPROMIDE
     Indication: PALPITATIONS
  3. IOPROMIDE [Suspect]
     Active Substance: IOPROMIDE
     Indication: IMAGING PROCEDURE
     Dosage: 100 ML, ONCE
     Route: 041
     Dates: start: 20170401, end: 20170401
  4. IOPROMIDE [Suspect]
     Active Substance: IOPROMIDE
     Indication: CHEST PAIN

REACTIONS (1)
  - Dermatitis [Recovered/Resolved]

NARRATIVE: CASE EVENT DATE: 20170403
